FAERS Safety Report 24706529 (Version 1)
Quarter: 2024Q4

REPORT INFORMATION
  Report Type: Spontaneous
  Country: CN (occurrence: CN)
  Receive Date: 20241206
  Receipt Date: 20241206
  Transmission Date: 20250115
  Serious: Yes (Life-Threatening)
  Sender: BAYER HEALTHCARE PHARMACEUTICALS INC.
  Company Number: CN-BAYER-2024A173215

PATIENT
  Age: 78 Year
  Sex: Female
  Weight: 88 kg

DRUGS (1)
  1. ULTRAVIST [Suspect]
     Active Substance: IOPROMIDE
     Indication: Computerised tomogram aorta
     Dosage: 100 ML, ONCE
     Route: 040
     Dates: start: 20241129, end: 20241129

REACTIONS (4)
  - Palpitations [Recovered/Resolved]
  - Dysphoria [Recovered/Resolved]
  - Tachypnoea [Recovered/Resolved]
  - Blood pressure systolic increased [Recovering/Resolving]

NARRATIVE: CASE EVENT DATE: 20241129
